FAERS Safety Report 5288086-6 (Version None)
Quarter: 2007Q2

REPORT INFORMATION
  Report Type: 
  Country: None (occurrence: None)
  Receive Date: 20070405
  Receipt Date: 20070403
  Transmission Date: 20071010
  Serious: Yes (Hospitalization)
  Sender: FDA-Public Use
  Company Number: SI-BRISTOL-MYERS SQUIBB COMPANY-13703574

PATIENT
  Age: 44 Year
  Sex: Male

DRUGS (3)
  1. CISPLATIN [Suspect]
     Indication: TESTICULAR SEMINOMA (PURE)
  2. ETOPOSIDE [Suspect]
  3. BLEOMYCIN [Suspect]

REACTIONS (2)
  - CAROTID ARTERY THROMBOSIS [None]
  - CEREBRAL ARTERY THROMBOSIS [None]
